FAERS Safety Report 10032482 (Version 1)
Quarter: 2014Q1

REPORT INFORMATION
  Report Type: Spontaneous
  Country: US (occurrence: US)
  Receive Date: 20140324
  Receipt Date: 20140324
  Transmission Date: 20141002
  Serious: Yes (Hospitalization)
  Sender: FDA-Public Use
  Company Number: US-DSJP-DSU-2014-101199

PATIENT
  Sex: 0

DRUGS (6)
  1. BENICAR [Suspect]
     Dosage: 40 MG, QD
     Route: 048
     Dates: end: 201402
  2. BENICAR [Suspect]
     Indication: HYPERTENSION
     Dosage: UNK
     Route: 048
     Dates: start: 2010
  3. BENICAR [Suspect]
     Dosage: 5 MG, QD
     Route: 048
     Dates: start: 201309, end: 201310
  4. BENICAR [Suspect]
     Dosage: 10 MG, QD
     Route: 048
     Dates: start: 201310, end: 201311
  5. BENICAR [Suspect]
     Dosage: 15 MG, QD
     Route: 048
     Dates: start: 201311, end: 201312
  6. BENICAR [Suspect]
     Dosage: 20 MG, QD
     Route: 048
     Dates: start: 201312

REACTIONS (10)
  - Palpitations [Recovered/Resolved]
  - Chest pain [Recovered/Resolved]
  - Dizziness [Recovered/Resolved]
  - Nausea [Recovered/Resolved]
  - Blood potassium decreased [Recovered/Resolved]
  - Weight decreased [Recovering/Resolving]
  - Blood pressure increased [Recovered/Resolved]
  - Gastrooesophageal reflux disease [Recovering/Resolving]
  - Nasopharyngitis [Not Recovered/Not Resolved]
  - Cough [Not Recovered/Not Resolved]
